FAERS Safety Report 6070058-5 (Version None)
Quarter: 2009Q1

REPORT INFORMATION
  Report Type: 
  Country: None (occurrence: None)
  Receive Date: 20090209
  Receipt Date: 20090130
  Transmission Date: 20090719
  Serious: Yes (Other)
  Sender: FDA-Public Use
  Company Number: PHHY2008BE32402

PATIENT
  Sex: Male

DRUGS (6)
  1. ZOMETA [Suspect]
     Indication: METASTASES TO BONE
     Dosage: 4 MG
     Dates: start: 20080701
  2. ZOMETA [Suspect]
     Indication: PROSTATE CANCER
     Dosage: UNK
     Dates: start: 20080801
  3. ZOMETA [Suspect]
     Dosage: UNK
     Dates: start: 20080901
  4. ELIGARD [Concomitant]
  5. CASODEX [Concomitant]
  6. TRAMADOL HCL [Concomitant]
     Dosage: 200 MG, BID

REACTIONS (1)
  - OSTEONECROSIS [None]
